FAERS Safety Report 4647884-X (Version None)
Quarter: 2005Q2

REPORT INFORMATION
  Report Type: 
  Country: None (occurrence: None)
  Receive Date: 20050426
  Receipt Date: 20050420
  Transmission Date: 20051028
  Serious: Yes (Death)
  Sender: FDA-Public Use
  Company Number: Q05-014

PATIENT
  Sex: Male
  Weight: 65.7716 kg

DRUGS (1)
  1. SAMARIUM 153 [Suspect]
     Indication: PROSTATE CANCER METASTATIC
     Dosage: 66 MCI
     Dates: start: 20050318

REACTIONS (1)
  - BLOOD TEST ABNORMAL [None]
